FAERS Safety Report 25323912 (Version 1)
Quarter: 2025Q2

REPORT INFORMATION
  Report Type: Spontaneous
  Country: IT (occurrence: IT)
  Receive Date: 20250516
  Receipt Date: 20250516
  Transmission Date: 20250717
  Serious: Yes (Other)
  Sender: ROCHE
  Company Number: IT-ROCHE-10000278621

PATIENT
  Age: 74 Year
  Sex: Male

DRUGS (1)
  1. LUNSUMIO [Suspect]
     Active Substance: MOSUNETUZUMAB-AXGB
     Indication: Follicular lymphoma refractory
     Route: 065
     Dates: start: 20240318, end: 20240829

REACTIONS (3)
  - Neutropenia [Not Recovered/Not Resolved]
  - Cytomegalovirus infection reactivation [Unknown]
  - Cytokine release syndrome [Unknown]
